FAERS Safety Report 7409149-2 (Version None)
Quarter: 2011Q2

REPORT INFORMATION
  Report Type: 
  Country: None (occurrence: None)
  Receive Date: 20110412
  Receipt Date: 20110401
  Transmission Date: 20111010
  Serious: Yes (Death)
  Sender: FDA-Public Use
  Company Number: CN-ROCHE-769633

PATIENT
  Age: 36 Year
  Sex: Male

DRUGS (6)
  1. MYCOPHENOLATE MOFETIL [Suspect]
     Indication: RENAL AND LIVER TRANSPLANT
     Route: 065
  2. HEPATITIS B IMMUNE GLOBULIN (HUMAN) [Concomitant]
     Dosage: AFTER THE TRANSPLANTATION.
     Route: 030
  3. TACROLIMUS [Concomitant]
     Indication: RENAL AND LIVER TRANSPLANT
  4. BASILIXIMAB [Concomitant]
     Dosage: DURING THE TRANSPLANTATION.
  5. HEPATITIS B IMMUNE GLOBULIN (HUMAN) [Concomitant]
     Dosage: DURING THE TRANSPLANTATION.
     Route: 030
  6. BASILIXIMAB [Concomitant]
     Dosage: ON THE 5TH DAY AFTER TRANSPLANTATION.

REACTIONS (3)
  - MULTI-ORGAN FAILURE [None]
  - LUNG INFECTION [None]
  - PNEUMONIA CYTOMEGALOVIRAL [None]
